FAERS Safety Report 17416090 (Version 1)
Quarter: 2020Q1

REPORT INFORMATION
  Report Type: Spontaneous
  Country: US (occurrence: US)
  Receive Date: 20200213
  Receipt Date: 20200213
  Transmission Date: 20200409
  Serious: Yes (Other)
  Sender: FDA-Public Use
  Company Number: US-REGENERON PHARMACEUTICALS, INC.-2020-17055

PATIENT

DRUGS (2)
  1. EYLEA [Suspect]
     Active Substance: AFLIBERCEPT
     Dosage: EVERY 3 TO 4 WEEKS, LEFT EYE, LAST DOSE
     Dates: start: 201906, end: 201906
  2. EYLEA [Suspect]
     Active Substance: AFLIBERCEPT
     Indication: MACULAR DEGENERATION
     Dosage: EVERY 3 TO 4 WEEKS
     Dates: start: 2017

REACTIONS (3)
  - Hypoacusis [Unknown]
  - Abdominal discomfort [Unknown]
  - Ostomy bag placement [Unknown]

NARRATIVE: CASE EVENT DATE: 201906
